FAERS Safety Report 9093818 (Version 1)
Quarter: 2013Q1

REPORT INFORMATION
  Report Type: Spontaneous
  Country: US (occurrence: US)
  Receive Date: 20130201
  Receipt Date: 20130201
  Transmission Date: 20140127
  Serious: No
  Sender: FDA-Public Use
  Company Number: US-TEVA-383758USA

PATIENT
  Age: 16 Year
  Sex: Male
  Weight: 122.58 kg

DRUGS (1)
  1. PROAIR HFA [Suspect]
     Indication: UPPER RESPIRATORY TRACT INFECTION
     Dosage: PRN
     Dates: start: 20130121, end: 20130122

REACTIONS (2)
  - Heart rate increased [Recovered/Resolved]
  - Chest discomfort [Recovered/Resolved]
